FAERS Safety Report 4352107-5 (Version None)
Quarter: 2004Q2

REPORT INFORMATION
  Report Type: 
  Country: None (occurrence: None)
  Receive Date: 20040428
  Receipt Date: 20040419
  Transmission Date: 20050107
  Serious: Yes (Other)
  Sender: FDA-Public Use
  Company Number: 200411888BCC

PATIENT
  Age: 67 Year
  Sex: Male
  Weight: 86.1834 kg

DRUGS (10)
  1. ALEVE [Suspect]
     Indication: TOOTHACHE
     Dosage: SEE IMAGE
     Route: 048
     Dates: start: 20040104, end: 20040404
  2. ALEVE [Suspect]
     Indication: TOOTHACHE
     Dosage: SEE IMAGE
     Route: 048
     Dates: start: 20040404, end: 20040416
  3. ALEVE [Suspect]
     Indication: TOOTHACHE
     Dosage: SEE IMAGE
     Route: 048
     Dates: start: 20040417
  4. ASPIRIN [Suspect]
     Dosage: 325 MG, QD, ORAL
     Route: 048
  5. VASOTEC [Concomitant]
  6. TRICOR [Concomitant]
  7. ZETIA [Concomitant]
  8. ENALAPRIL MALEATE [Concomitant]
  9. AMBIEN [Concomitant]
  10. LOW BLOOD PRESSURE MEDICATION [Concomitant]

REACTIONS (4)
  - ABDOMINAL PAIN [None]
  - EAR INFECTION [None]
  - GROIN PAIN [None]
  - RENAL PAIN [None]
